FAERS Safety Report 24939902 (Version 1)
Quarter: 2025Q1

REPORT INFORMATION
  Report Type: Spontaneous
  Country: BR (occurrence: BR)
  Receive Date: 20250207
  Receipt Date: 20250207
  Transmission Date: 20250409
  Serious: Yes (Other)
  Sender: TAKEDA
  Company Number: BR-TAKEDA-2025TUS011632

PATIENT
  Age: 83 Year
  Sex: Female

DRUGS (3)
  1. DEXILANT [Suspect]
     Active Substance: DEXLANSOPRAZOLE
     Indication: Gastric ulcer
  2. DEXILANT [Suspect]
     Active Substance: DEXLANSOPRAZOLE
     Indication: Neoplasm malignant
  3. DEXILANT [Suspect]
     Active Substance: DEXLANSOPRAZOLE
     Indication: Oesophageal ulcer

REACTIONS (6)
  - Adverse event [Unknown]
  - Off label use [Unknown]
  - Defaecation urgency [Unknown]
  - Tinnitus [Unknown]
  - Depression [Unknown]
  - Constipation [Unknown]
